FAERS Safety Report 18283446 (Version 1)
Quarter: 2020Q3

REPORT INFORMATION
  Report Type: Spontaneous
  Country: FR (occurrence: FR)
  Receive Date: 20200918
  Receipt Date: 20200918
  Transmission Date: 20201103
  Serious: Yes (Other)
  Sender: FDA-Public Use
  Company Number: FR-009507513-2009FRA004784

PATIENT
  Age: 52 Year
  Sex: Male

DRUGS (3)
  1. AERIUS (DESLORATADINE) [Suspect]
     Active Substance: DESLORATADINE
     Indication: RASH
     Dosage: UNK
     Route: 048
     Dates: start: 202006, end: 202006
  2. AMOXICILLIN. [Suspect]
     Active Substance: AMOXICILLIN
     Indication: RASH
     Dosage: UNK
     Route: 048
     Dates: start: 202006, end: 202006
  3. INFLIXIMAB [Concomitant]
     Active Substance: INFLIXIMAB
     Dosage: UNK

REACTIONS (1)
  - Rash maculovesicular [Recovering/Resolving]

NARRATIVE: CASE EVENT DATE: 202006
